FAERS Safety Report 19417567 (Version 2)
Quarter: 2021Q4

REPORT INFORMATION
  Report Type: Report from Study
  Country: US (occurrence: US)
  Receive Date: 20210615
  Receipt Date: 20211101
  Transmission Date: 20220303
  Serious: Yes (Other)
  Sender: FDA-Public Use
  Company Number: US-NOVARTISPH-NVSC2021US129771

PATIENT
  Sex: Female

DRUGS (2)
  1. MAYZENT [Suspect]
     Active Substance: SIPONIMOD
     Indication: Product used for unknown indication
     Dosage: 2 MG, QD
     Route: 065
     Dates: start: 201908
  2. MAYZENT [Suspect]
     Active Substance: SIPONIMOD
     Route: 048

REACTIONS (7)
  - Red blood cell count decreased [Unknown]
  - Multiple sclerosis relapse [Unknown]
  - Anaemia [Recovered/Resolved]
  - Inflammatory marker increased [Unknown]
  - Stress [Unknown]
  - Limb discomfort [Unknown]
  - Visual impairment [Unknown]
